FAERS Safety Report 21160514 (Version 1)
Quarter: 2022Q3

REPORT INFORMATION
  Report Type: Spontaneous
  Country: US (occurrence: US)
  Receive Date: 20220802
  Receipt Date: 20220802
  Transmission Date: 20221027
  Serious: No
  Sender: FDA-Public Use
  Company Number: US-AMNEAL PHARMACEUTICALS-2022-AMRX-01255

PATIENT
  Sex: Female
  Weight: 81.633 kg

DRUGS (1)
  1. ACYCLOVIR [Suspect]
     Active Substance: ACYCLOVIR
     Indication: Herpes virus infection
     Dosage: 5 PERCENT, OINTMENT 6 TIMES IN DAY FOR 7 DAYS
     Route: 061

REACTIONS (1)
  - Drug ineffective [Unknown]
